FAERS Safety Report 15628788 (Version 1)
Quarter: 2018Q4

REPORT INFORMATION
  Report Type: Spontaneous
  Country: SE (occurrence: SE)
  Receive Date: 20181116
  Receipt Date: 20181116
  Transmission Date: 20190205
  Serious: Yes (Other)
  Sender: FDA-Public Use
  Company Number: SE-TEVA-2018-SE-974895

PATIENT
  Age: 69 Year
  Sex: Female

DRUGS (5)
  1. ZINACEF [Concomitant]
     Active Substance: CEFUROXIME SODIUM
     Indication: INFECTION
     Route: 065
     Dates: start: 201005, end: 201005
  2. ALL OTHER THERAPEUTIC PRODUCTS [Concomitant]
     Active Substance: UNSPECIFIED INGREDIENT
     Indication: HYPERTENSION
     Route: 065
  3. DOXYFERM [Suspect]
     Active Substance: DOXYCYCLINE
     Route: 065
     Dates: start: 201005, end: 201005
  4. METRONIDAZOLE. [Suspect]
     Active Substance: METRONIDAZOLE
     Indication: INFECTION
     Route: 048
     Dates: start: 201005, end: 201005
  5. CIPROFLOXACIN. [Suspect]
     Active Substance: CIPROFLOXACIN
     Indication: INFECTION
     Route: 048
     Dates: start: 201005, end: 201005

REACTIONS (1)
  - Asthma [Recovered/Resolved]

NARRATIVE: CASE EVENT DATE: 201005
